FAERS Safety Report 9436500 (Version 3)
Quarter: 2013Q3

REPORT INFORMATION
  Report Type: Spontaneous
  Country: US (occurrence: US)
  Receive Date: 20130802
  Receipt Date: 20130916
  Transmission Date: 20140515
  Serious: Yes (Hospitalization, Other)
  Sender: FDA-Public Use
  Company Number: US-B.I. PHARMACEUTICALS,INC./RIDGEFIELD-2013-BI-22919BP

PATIENT
  Age: 74 Year
  Sex: Female
  Weight: 53.98 kg

DRUGS (15)
  1. SPIRIVA [Suspect]
     Indication: BRONCHITIS CHRONIC
     Dosage: 18 MCG
     Route: 055
     Dates: start: 20120423
  2. ALPRAZOLAM [Concomitant]
     Indication: ANXIETY
  3. MIRALAX [Concomitant]
  4. PROAIR [Concomitant]
     Indication: ASTHMA
     Dosage: 8.56M
     Route: 055
     Dates: start: 20130511
  5. PROAIR [Concomitant]
     Indication: CHRONIC OBSTRUCTIVE PULMONARY DISEASE
  6. METFORMEN [Concomitant]
     Indication: DIABETES MELLITUS
  7. KLORCON [Concomitant]
     Indication: MINERAL SUPPLEMENTATION
  8. TRAMADOL [Concomitant]
     Indication: PAIN
  9. LASIX [Concomitant]
     Indication: FLUID RETENTION
  10. BACLOFEN [Concomitant]
  11. ADVAIR [Concomitant]
     Indication: BRONCHITIS CHRONIC
  12. ADVAIR [Concomitant]
     Indication: ASTHMA
     Dosage: DOSE 250MCG
     Dates: start: 20120706
  13. ADVAIR [Concomitant]
     Indication: CHRONIC OBSTRUCTIVE PULMONARY DISEASE
  14. OMEPRAZOLE [Concomitant]
     Indication: HIATUS HERNIA
  15. FLOUXETINE [Concomitant]
     Indication: ANXIETY

REACTIONS (9)
  - Transient ischaemic attack [Not Recovered/Not Resolved]
  - Palpitations [Not Recovered/Not Resolved]
  - Tremor [Not Recovered/Not Resolved]
  - Dizziness [Not Recovered/Not Resolved]
  - Sinus congestion [Not Recovered/Not Resolved]
  - Dyspnoea [Not Recovered/Not Resolved]
  - Product quality issue [Recovered/Resolved]
  - Product quality issue [Recovered/Resolved]
  - Dizziness [Recovered/Resolved with Sequelae]
